FAERS Safety Report 21203934 (Version 2)
Quarter: 2022Q3

REPORT INFORMATION
  Report Type: Spontaneous
  Country: JP (occurrence: JP)
  Receive Date: 20220811
  Receipt Date: 20220830
  Transmission Date: 20221027
  Serious: Yes (Other)
  Sender: FDA-Public Use
  Company Number: JP-NOVARTISPH-NVSJ2022JP095807

PATIENT
  Age: 87 Year
  Sex: Male

DRUGS (4)
  1. ENTRESTO [Suspect]
     Active Substance: SACUBITRIL\VALSARTAN
     Indication: Hypertension
     Dosage: 200 MG
     Route: 048
     Dates: start: 20220510, end: 202207
  2. ENTRESTO [Suspect]
     Active Substance: SACUBITRIL\VALSARTAN
     Dosage: 100 MG
     Route: 048
     Dates: start: 20220705
  3. ADALAT [Suspect]
     Active Substance: NIFEDIPINE
     Indication: Product used for unknown indication
     Dosage: 60 MG
     Route: 048
     Dates: start: 20211207
  4. CILNIDIPINE [Suspect]
     Active Substance: CILNIDIPINE
     Indication: Product used for unknown indication
     Dosage: 20 MG
     Route: 048
     Dates: start: 20211207

REACTIONS (4)
  - Hyperkalaemia [Recovered/Resolved]
  - Hyperkalaemia [Not Recovered/Not Resolved]
  - Renal impairment [Unknown]
  - Oedema [Unknown]

NARRATIVE: CASE EVENT DATE: 20220705
